FAERS Safety Report 9440943 (Version 1)
Quarter: 2013Q3

REPORT INFORMATION
  Report Type: Spontaneous
  Country: US (occurrence: US)
  Receive Date: 20130805
  Receipt Date: 20130805
  Transmission Date: 20140515
  Serious: Yes (Other)
  Sender: FDA-Public Use
  Company Number: US-MYLANLABS-2013S1016666

PATIENT
  Age: 82 Year
  Sex: Male

DRUGS (5)
  1. AMOXICILLIN [Suspect]
     Indication: HELICOBACTER INFECTION
     Route: 065
  2. CLARITHROMYCIN [Interacting]
     Indication: HELICOBACTER INFECTION
     Route: 065
  3. OMEPRAZOLE [Interacting]
     Indication: HELICOBACTER INFECTION
     Route: 065
  4. INSULIN DETEMIR [Interacting]
     Indication: TYPE 2 DIABETES MELLITUS
     Dosage: 32 UNITS ONCE A DAY AT BEDTIME
     Route: 065
  5. INSULIN ASPART [Concomitant]
     Indication: TYPE 2 DIABETES MELLITUS
     Dosage: 3 TIMES A DAY WITH MEALS USING DOSE BASED ON CARBOHYDRATE INTAKE
     Route: 065

REACTIONS (2)
  - Hypoglycaemia [Recovered/Resolved]
  - Drug interaction [Recovered/Resolved]
